FAERS Safety Report 10763905 (Version 3)
Quarter: 2018Q1

REPORT INFORMATION
  Report Type: Spontaneous
  Country: US (occurrence: US)
  Receive Date: 20150204
  Receipt Date: 20180307
  Transmission Date: 20180508
  Serious: Yes (Hospitalization, Other)
  Sender: FDA-Public Use
  Company Number: US-PFIZER INC-2015041706

PATIENT
  Age: 42 Year
  Sex: Male
  Weight: 113.8 kg

DRUGS (2)
  1. BENEFIX [Suspect]
     Active Substance: COAGULATION FACTOR IX RECOMBINANT HUMAN\ISOPROPYL ALCOHOL
     Indication: HAEMORRHAGE PROPHYLAXIS
     Dosage: 8000 IU, 3X A WEEK
  2. BENEFIX [Suspect]
     Active Substance: COAGULATION FACTOR IX RECOMBINANT HUMAN\ISOPROPYL ALCOHOL
     Indication: HAEMORRHAGE
     Dosage: 8000 IU, AS NEEDED [TWICE A WEEK AS NEEDED ]
     Route: 042
     Dates: start: 2008

REACTIONS (5)
  - Haemorrhage [Not Recovered/Not Resolved]
  - Nerve injury [Recovering/Resolving]
  - Hepatic cirrhosis [Not Recovered/Not Resolved]
  - Product use in unapproved indication [Unknown]
  - Fluid retention [Not Recovered/Not Resolved]

NARRATIVE: CASE EVENT DATE: 2015
